FAERS Safety Report 9684170 (Version 2)
Quarter: 2014Q2

REPORT INFORMATION
  Report Type: Spontaneous
  Country: US (occurrence: US)
  Receive Date: 20131112
  Receipt Date: 20140424
  Transmission Date: 20141212
  Serious: Yes (Hospitalization)
  Sender: FDA-Public Use
  Company Number: US-B.I. PHARMACEUTICALS,INC./RIDGEFIELD-2013-BI-36406BP

PATIENT
  Age: 53 Year
  Sex: Male
  Weight: 133.8 kg

DRUGS (23)
  1. PRADAXA [Suspect]
     Indication: ATRIAL FLUTTER
     Dosage: 300 MG
     Route: 065
     Dates: start: 20111129, end: 20120425
  2. PRADAXA [Suspect]
     Indication: ATRIAL FIBRILLATION
  3. SPIRIVA [Concomitant]
     Route: 055
  4. SYNTHROID [Concomitant]
     Indication: HYPOTHYROIDISM
     Dosage: 150 MCG
     Route: 065
  5. ADVAIR DISKUS [Concomitant]
     Route: 065
  6. ALBUTEROL [Concomitant]
     Route: 065
  7. PLAVIX [Concomitant]
     Dosage: 75 MG
     Route: 065
     Dates: end: 201204
  8. VYTORIN [Concomitant]
     Route: 065
  9. ASPIRIN [Concomitant]
     Dosage: 81 MG
     Route: 065
  10. LASIX [Concomitant]
     Dosage: 40 MG
     Route: 065
  11. PREDNISONE [Concomitant]
     Route: 065
  12. ULTRAM [Concomitant]
     Indication: PAIN
     Route: 065
  13. PRIMIDONE [Concomitant]
     Route: 065
  14. XANAX [Concomitant]
     Route: 065
  15. LANTUS [Concomitant]
     Route: 065
  16. TIAZAC [Concomitant]
     Dosage: 240 MG
     Route: 065
  17. DIAMOX [Concomitant]
     Indication: ACID BASE BALANCE ABNORMAL
     Dosage: 250 MG
     Route: 065
  18. DIGOXIN [Concomitant]
     Dosage: 0.125 MG
     Route: 065
  19. LORTAB [Concomitant]
     Indication: PAIN
     Route: 065
  20. LISINOPRIL [Concomitant]
     Dosage: 10 MG
     Route: 065
  21. TYLENOL PM [Concomitant]
     Route: 065
  22. HUMALOG [Concomitant]
     Route: 065
  23. ACIDOPHILUS [Concomitant]
     Route: 065

REACTIONS (4)
  - Upper gastrointestinal haemorrhage [Recovered/Resolved]
  - Respiratory failure [Unknown]
  - Pneumonia [Unknown]
  - Chronic obstructive pulmonary disease [Unknown]
